FAERS Safety Report 21111155 (Version 1)
Quarter: 2022Q3

REPORT INFORMATION
  Report Type: Spontaneous
  Country: US (occurrence: None)
  Receive Date: 20220720
  Receipt Date: 20220720
  Transmission Date: 20221027
  Serious: No
  Sender: FDA-Public Use
  Company Number: None

PATIENT
  Age: 71 Year
  Sex: Male
  Weight: 98.1 kg

DRUGS (7)
  1. REVLIMID [Suspect]
     Active Substance: LENALIDOMIDE
     Indication: Myelodysplastic syndrome
     Dosage: OTHER FREQUENCY : 21 ON/ 7 OFF;?
     Route: 048
     Dates: start: 20220509
  2. aspirin 325 mg tablet [Concomitant]
  3. levothyroxine 125 mcg capsule [Concomitant]
  4. metoprolol tartrate 25 mg table [Concomitant]
  5. Multi Vitamin 9 mg iron/15 mL oral liquid [Concomitant]
  6. pramipexole 0.25 mg tablet [Concomitant]
  7. TAMSULOSIN HYDROCHLORIDE [Concomitant]
     Active Substance: TAMSULOSIN HYDROCHLORIDE

REACTIONS (1)
  - Diarrhoea [None]

NARRATIVE: CASE EVENT DATE: 20220720
